FAERS Safety Report 18061695 (Version 2)
Quarter: 2020Q3

REPORT INFORMATION
  Report Type: Spontaneous
  Country: PK (occurrence: PK)
  Receive Date: 20200723
  Receipt Date: 20200805
  Transmission Date: 20201103
  Serious: Yes (Hospitalization, Other)
  Sender: FDA-Public Use
  Company Number: PK-NOVOPROD-742040

PATIENT
  Age: 50 Year
  Sex: Female
  Weight: 95 kg

DRUGS (3)
  1. NOVOMIX 30 FLEXPEN [Suspect]
     Active Substance: INSULIN ASPART
     Dosage: 42 IU, QD (22+20 UNITS PER DAY)
     Route: 058
  2. NOVOMIX 30 FLEXPEN [Suspect]
     Active Substance: INSULIN ASPART
     Indication: TYPE 2 DIABETES MELLITUS
     Dosage: UNK
     Route: 058
     Dates: start: 20160701
  3. NOVOMIX 30 FLEXPEN [Suspect]
     Active Substance: INSULIN ASPART
     Dosage: 50 IU, QD
     Route: 058

REACTIONS (2)
  - Abscess limb [Recovered/Resolved]
  - Hyperglycaemia [Recovered/Resolved]

NARRATIVE: CASE EVENT DATE: 20200301
